FAERS Safety Report 12199572 (Version 1)
Quarter: 2016Q1

REPORT INFORMATION
  Report Type: Spontaneous
  Country: US (occurrence: US)
  Receive Date: 20160322
  Receipt Date: 20160322
  Transmission Date: 20160526
  Serious: No
  Sender: FDA-Public Use
  Company Number: US-VERTEX PHARMACEUTICALS-2016-001770

PATIENT
  Age: 38 Year
  Sex: Male
  Weight: 87 kg

DRUGS (7)
  1. VITAMIN D [Concomitant]
     Active Substance: CHOLECALCIFEROL
  2. PULMOZYME [Concomitant]
     Active Substance: DORNASE ALFA
  3. IBUPROFEN. [Concomitant]
     Active Substance: IBUPROFEN
  4. ORKAMBI [Suspect]
     Active Substance: IVACAFTOR\LUMACAFTOR
     Indication: CYSTIC FIBROSIS
     Dosage: 400/250 MG, 2 DF, BID
     Route: 048
     Dates: start: 20151026
  5. ZENPEP [Concomitant]
     Active Substance: PANCRELIPASE AMYLASE\PANCRELIPASE LIPASE\PANCRELIPASE PROTEASE
  6. TYLENOL [Concomitant]
     Active Substance: ACETAMINOPHEN
  7. MVI [Concomitant]
     Active Substance: VITAMINS

REACTIONS (1)
  - Sinusitis [Unknown]

NARRATIVE: CASE EVENT DATE: 20160219
